FAERS Safety Report 7586410-2 (Version None)
Quarter: 2011Q3

REPORT INFORMATION
  Report Type: 
  Country: None (occurrence: None)
  Receive Date: 20110701
  Receipt Date: 20110623
  Transmission Date: 20111222
  Serious: Yes (Hospitalization)
  Sender: FDA-Public Use
  Company Number: B0595584A

PATIENT
  Sex: Female
  Weight: 42 kg

DRUGS (8)
  1. TYKERB [Suspect]
     Dosage: 1000MG PER DAY
     Route: 048
     Dates: start: 20090925, end: 20100204
  2. DEPAKENE [Concomitant]
     Indication: CONVULSION
     Route: 048
     Dates: start: 20090905, end: 20100829
  3. TYKERB [Suspect]
     Indication: BREAST CANCER
     Dosage: 1250MG PER DAY
     Route: 048
     Dates: start: 20090827, end: 20090907
  4. XELODA [Suspect]
     Dosage: 2400MG PER DAY
     Route: 048
     Dates: start: 20090827, end: 20090907
  5. ZONISAMIDE [Suspect]
     Indication: CONVULSION
     Route: 048
     Dates: start: 20090806, end: 20090907
  6. PYDOXAL [Concomitant]
     Indication: PROPHYLAXIS
     Route: 048
     Dates: start: 20090827, end: 20100128
  7. ZOMETA [Concomitant]
     Indication: NEOPLASM MALIGNANT
     Route: 042
     Dates: start: 20090401, end: 20100113
  8. XELODA [Suspect]
     Dosage: 2400MG PER DAY
     Route: 048
     Dates: start: 20090925, end: 20100128

REACTIONS (1)
  - URTICARIA [None]
